FAERS Safety Report 9342887 (Version 3)
Quarter: 2013Q4

REPORT INFORMATION
  Report Type: Spontaneous
  Country: JP (occurrence: JP)
  Receive Date: 20130611
  Receipt Date: 20131028
  Transmission Date: 20140711
  Serious: Yes (Hospitalization)
  Sender: FDA-Public Use
  Company Number: JP-GLAXOSMITHKLINE-B0897985A

PATIENT
  Age: 28 Year
  Sex: Female

DRUGS (8)
  1. LAMICTAL [Suspect]
     Indication: EPILEPSY
     Dosage: 25MG PER DAY
     Route: 048
     Dates: start: 20130411, end: 20130424
  2. LAMICTAL [Suspect]
     Indication: EPILEPSY
     Dosage: 25MG TWICE PER DAY
     Route: 048
     Dates: start: 20130425, end: 20130427
  3. DEPAKENE-R [Suspect]
     Indication: EPILEPSY
     Route: 048
     Dates: end: 20130410
  4. DEPAKENE-R [Suspect]
     Indication: EPILEPSY
     Dosage: 300MG TWICE PER DAY
     Route: 048
     Dates: start: 20130411
  5. MUCOSAL [Concomitant]
     Indication: ASTHMA
     Dosage: 45MG PER DAY
     Route: 048
     Dates: start: 20061018
  6. ONON [Concomitant]
     Indication: ASTHMA
     Dosage: 225MG TWICE PER DAY
     Route: 048
     Dates: start: 20061018
  7. MYSTAN [Concomitant]
     Indication: EPILEPSY
     Dosage: 5MG PER DAY
     Route: 048
     Dates: start: 20130228
  8. MIGSIS [Concomitant]
     Indication: MIGRAINE
     Dosage: 5MG TWICE PER DAY
     Route: 048
     Dates: start: 20130325, end: 20130427

REACTIONS (6)
  - Drug eruption [Recovered/Resolved]
  - Erythema [Unknown]
  - Erythema [Unknown]
  - Pruritus [Unknown]
  - Rash [Recovered/Resolved]
  - Oral mucosa erosion [Unknown]
